FAERS Safety Report 6149365-3 (Version None)
Quarter: 2009Q2

REPORT INFORMATION
  Report Type: 
  Country: None (occurrence: None)
  Receive Date: 20090409
  Receipt Date: 20090326
  Transmission Date: 20091009
  Serious: No
  Sender: FDA-Public Use
  Company Number: US-BIOGENIDEC-2009BI003990

PATIENT
  Age: 43 Year
  Sex: Female

DRUGS (2)
  1. TYSABRI [Suspect]
     Indication: MULTIPLE SCLEROSIS
     Route: 042
     Dates: end: 20070514
  2. TYSABRI [Suspect]
     Route: 042
     Dates: start: 20070706

REACTIONS (2)
  - MOTOR DYSFUNCTION [None]
  - MULTIPLE SCLEROSIS [None]
